FAERS Safety Report 24165710 (Version 1)
Quarter: 2024Q3

REPORT INFORMATION
  Report Type: Spontaneous
  Country: US (occurrence: US)
  Receive Date: 20240802
  Receipt Date: 20240802
  Transmission Date: 20241017
  Serious: Yes (Other)
  Sender: ACCORD
  Company Number: US-Accord-419147

PATIENT
  Age: 54 Year
  Sex: Female
  Weight: 81.65 kg

DRUGS (6)
  1. DOCETAXEL [Suspect]
     Active Substance: DOCETAXEL\DOCETAXEL ANHYDROUS
     Indication: Breast cancer
     Dates: start: 20141211, end: 20150305
  2. NEOSAR [Suspect]
     Active Substance: CYCLOPHOSPHAMIDE
     Indication: Breast cancer
     Dates: start: 20141211, end: 20150305
  3. ADRIAMYCIN [Suspect]
     Active Substance: DOXORUBICIN HYDROCHLORIDE
     Indication: Breast cancer
     Dates: start: 20141211, end: 20150305
  4. DOXIL [Suspect]
     Active Substance: DOXORUBICIN HYDROCHLORIDE
     Indication: Breast cancer
     Dates: start: 20141211, end: 20150305
  5. VITAMIN C [Concomitant]
     Active Substance: ASCORBIC ACID
     Dates: start: 2014
  6. IBUPROFEN [Concomitant]
     Active Substance: IBUPROFEN
     Dates: start: 2014, end: 2016

REACTIONS (1)
  - Alopecia [Recovered/Resolved]

NARRATIVE: CASE EVENT DATE: 20150901
